FAERS Safety Report 10201525 (Version 1)
Quarter: 2014Q2

REPORT INFORMATION
  Report Type: Spontaneous
  Country: ES (occurrence: ES)
  Receive Date: 20140528
  Receipt Date: 20140528
  Transmission Date: 20141212
  Serious: Yes (Other)
  Sender: FDA-Public Use
  Company Number: ES-WATSON-2014-10660

PATIENT
  Age: 61 Year
  Sex: Female

DRUGS (3)
  1. MIRTAZAPINE (UNKNOWN) [Suspect]
     Indication: MAJOR DEPRESSION
     Dosage: 15 MG, SINGLE
     Route: 065
  2. SERTRALINE [Concomitant]
     Indication: DYSTHYMIC DISORDER
     Dosage: 20 MG, DAILY
     Route: 065
  3. ENALAPRIL [Concomitant]
     Indication: HYPERTENSION
     Dosage: 5 MG, DAILY
     Route: 065

REACTIONS (1)
  - Pleurothotonus [Recovered/Resolved]
